FAERS Safety Report 8556084-2 (Version None)
Quarter: 2012Q3

REPORT INFORMATION
  Report Type: 
  Country: None (occurrence: None)
  Receive Date: 20120801
  Receipt Date: 20120720
  Transmission Date: 20120928
  Serious: Yes (Hospitalization, Other)
  Sender: FDA-Public Use
  Company Number: US-JNJFOC-20120308797

PATIENT
  Sex: Female
  Weight: 74.84 kg

DRUGS (8)
  1. RISPERDAL [Concomitant]
     Indication: COGNITIVE DISORDER
     Route: 065
  2. RISPERIDONE [Suspect]
     Indication: PRODUCT USED FOR UNKNOWN INDICATION
     Route: 048
  3. RISPERIDONE [Suspect]
     Indication: COGNITIVE DISORDER
     Route: 048
     Dates: start: 20120301
  4. RISPERIDONE [Suspect]
     Indication: PARANOIA
     Route: 048
     Dates: start: 20120301
  5. PROZAC [Concomitant]
     Indication: MAJOR DEPRESSION
     Route: 048
     Dates: start: 19960101
  6. RISPERIDONE [Suspect]
     Indication: SLEEP DISORDER
     Route: 048
     Dates: start: 20120301
  7. RISPERDAL [Concomitant]
     Indication: PARANOIA
     Route: 065
  8. RISPERDAL [Concomitant]
     Indication: SLEEP DISORDER
     Route: 065

REACTIONS (23)
  - PALPITATIONS [None]
  - PSYCHOTIC DISORDER [None]
  - FEELING OF BODY TEMPERATURE CHANGE [None]
  - BLOOD PRESSURE INCREASED [None]
  - RESTLESSNESS [None]
  - INSOMNIA [None]
  - DRUG HYPERSENSITIVITY [None]
  - THINKING ABNORMAL [None]
  - TREMOR [None]
  - ERUCTATION [None]
  - CONFUSIONAL STATE [None]
  - BALANCE DISORDER [None]
  - HYPERHIDROSIS [None]
  - ADVERSE EVENT [None]
  - DRUG INEFFECTIVE [None]
  - PERIPHERAL COLDNESS [None]
  - HEADACHE [None]
  - FALL [None]
  - ANXIETY [None]
  - JOINT INJURY [None]
  - FEELING ABNORMAL [None]
  - CLUMSINESS [None]
  - OESOPHAGEAL PAIN [None]
